FAERS Safety Report 9791509 (Version 2)
Quarter: 2015Q2

REPORT INFORMATION
  Report Type: Spontaneous
  Country: JP (occurrence: JP)
  Receive Date: 20140101
  Receipt Date: 20150518
  Transmission Date: 20150821
  Serious: Yes (Other)
  Sender: FDA-Public Use
  Company Number: PHHY2013JP152516

PATIENT
  Age: 60 Year
  Sex: Male
  Weight: 66 kg

DRUGS (5)
  1. DOCETAXEL. [Suspect]
     Active Substance: DOCETAXEL
     Indication: PROSTATE CANCER
     Dates: start: 201203
  2. PREDNISONE. [Suspect]
     Active Substance: PREDNISONE
     Indication: PROSTATE CANCER
     Route: 065
     Dates: start: 201203
  3. MELOXICAM. [Concomitant]
     Active Substance: MELOXICAM
     Indication: BACK PAIN
     Route: 065
  4. CARBOPLATIN. [Suspect]
     Active Substance: CARBOPLATIN
     Indication: PROSTATE CANCER
     Route: 065
     Dates: start: 200601
  5. PACLITAXEL. [Suspect]
     Active Substance: PACLITAXEL
     Indication: PROSTATE CANCER
     Route: 065
     Dates: start: 200601

REACTIONS (7)
  - Neuropathy peripheral [Unknown]
  - White blood cell count decreased [Unknown]
  - Platelet count decreased [Unknown]
  - Haemoglobin decreased [Unknown]
  - Metastases to bone [Recovering/Resolving]
  - Leukopenia [Unknown]
  - Thrombocytopenia [Unknown]
